FAERS Safety Report 24273342 (Version 1)
Quarter: 2024Q3

REPORT INFORMATION
  Report Type: Spontaneous
  Country: US (occurrence: US)
  Receive Date: 20240902
  Receipt Date: 20240902
  Transmission Date: 20241017
  Serious: Yes (Other)
  Sender: ASTELLAS
  Company Number: US-ASTELLAS-2024US012011

PATIENT
  Age: 55 Year
  Sex: Male

DRUGS (3)
  1. XTANDI [Suspect]
     Active Substance: ENZALUTAMIDE
     Indication: Prostate cancer
     Dosage: 160 MG, ONCE DAILY
     Route: 048
     Dates: start: 2024
  2. XTANDI [Suspect]
     Active Substance: ENZALUTAMIDE
     Indication: Metastases to bone
  3. XTANDI [Suspect]
     Active Substance: ENZALUTAMIDE
     Indication: Metastases to lymph nodes

REACTIONS (2)
  - Lumbar vertebral fracture [Recovering/Resolving]
  - Spinal compression fracture [Recovering/Resolving]

NARRATIVE: CASE EVENT DATE: 20240313
